FAERS Safety Report 15697013 (Version 1)
Quarter: 2018Q4

REPORT INFORMATION
  Report Type: Spontaneous
  Country: ES (occurrence: ES)
  Receive Date: 20181206
  Receipt Date: 20181206
  Transmission Date: 20190205
  Serious: Yes (Hospitalization)
  Sender: FDA-Public Use
  Company Number: ES-PRINSTON PHARMACEUTICAL INC.-2018PRN01647

PATIENT
  Age: 43 Year
  Sex: Female

DRUGS (1)
  1. DULOXETINE. [Suspect]
     Active Substance: DULOXETINE
     Dosage: 80 TABLETS, ONCE
     Route: 065

REACTIONS (2)
  - Opsoclonus myoclonus [Recovering/Resolving]
  - Overdose [Recovered/Resolved]
